FAERS Safety Report 24893898 (Version 1)
Quarter: 2025Q1

REPORT INFORMATION
  Report Type: Report from Study
  Country: US (occurrence: US)
  Receive Date: 20250128
  Receipt Date: 20250128
  Transmission Date: 20250409
  Serious: No
  Sender: ACADIA PHARMACEUTICALS
  Company Number: US-ACADIA PHARMACEUTICALS INC.-ACA-2025-TRF-000381

PATIENT
  Sex: Female

DRUGS (1)
  1. DAYBUE [Suspect]
     Active Substance: TROFINETIDE
     Indication: Rett syndrome
     Dosage: 30 MILLILITER, BID
     Route: 048

REACTIONS (7)
  - Respiratory disorder [Not Recovered/Not Resolved]
  - Pain [Not Recovered/Not Resolved]
  - Cough [Not Recovered/Not Resolved]
  - Productive cough [Not Recovered/Not Resolved]
  - Pyrexia [Not Recovered/Not Resolved]
  - Vomiting [Not Recovered/Not Resolved]
  - Therapy interrupted [Not Recovered/Not Resolved]
